FAERS Safety Report 11315923 (Version 1)
Quarter: 2015Q3

REPORT INFORMATION
  Report Type: Spontaneous
  Country: US (occurrence: None)
  Receive Date: 20150727
  Receipt Date: 20150727
  Transmission Date: 20151125
  Serious: Yes (Death, Life-Threatening, Hospitalization)
  Sender: FDA-Public Use
  Company Number: None

PATIENT
  Age: 69 Year
  Sex: Male

DRUGS (1)
  1. XARELTO [Suspect]
     Active Substance: RIVAROXABAN

REACTIONS (6)
  - Pulseless electrical activity [None]
  - Oesophageal mass [None]
  - Haemorrhage [None]
  - Haemoptysis [None]
  - Epistaxis [None]
  - Respiratory distress [None]

NARRATIVE: CASE EVENT DATE: 20150507
